FAERS Safety Report 24333209 (Version 1)
Quarter: 2024Q3

REPORT INFORMATION
  Report Type: Spontaneous
  Country: JP (occurrence: JP)
  Receive Date: 20240918
  Receipt Date: 20240918
  Transmission Date: 20241017
  Serious: Yes (Other)
  Sender: PFIZER
  Company Number: JP-PFIZER INC-202400256053

PATIENT
  Sex: Male

DRUGS (1)
  1. LORAZEPAM [Suspect]
     Active Substance: LORAZEPAM
     Indication: Cardiovascular somatic symptom disorder
     Dosage: 0.5 MG, AS NEEDED
     Route: 048
     Dates: start: 2022

REACTIONS (10)
  - Cerebral infarction [Unknown]
  - Malaise [Unknown]
  - Dizziness [Unknown]
  - Tinnitus [Unknown]
  - Nausea [Unknown]
  - Pharyngeal swelling [Unknown]
  - Dyspnoea [Unknown]
  - Feeling cold [Unknown]
  - Hyperhidrosis [Unknown]
  - Drug ineffective [Unknown]

NARRATIVE: CASE EVENT DATE: 20230101
